FAERS Safety Report 8181552-5 (Version None)
Quarter: 2012Q1

REPORT INFORMATION
  Report Type: 
  Country: None (occurrence: None)
  Receive Date: 20120126
  Receipt Date: 20111201
  Transmission Date: 20120608
  Serious: No
  Sender: FDA-Public Use
  Company Number: PHEH2011US010914

PATIENT
  Age: 62 Year
  Sex: Female
  Weight: 71.2 kg

DRUGS (6)
  1. SANDOSTATIN LAR (OCTREOTIDE), 30 MG [Concomitant]
  2. AFINITOR [Suspect]
     Dosage: 1 DF, QD, ORAL
     Route: 048
  3. CALCIUM (CALCIUM) TABLET [Concomitant]
  4. MULTIVITAMINS (ASCORBIC ACID, ERGOCALCIFEROL, FOLIC ACID, NICOTINAMIDE [Concomitant]
  5. D3 (COLECALCIFEROL) CAPSULE, 400 U [Concomitant]
  6. OMEPRAZOLE (OMEPRAZOLE) CAPSULE, 40 MG [Concomitant]

REACTIONS (5)
  - PULMONARY CONGESTION [None]
  - ORAL PAIN [None]
  - SWELLING FACE [None]
  - WHITE BLOOD CELL COUNT DECREASED [None]
  - PAIN [None]
